FAERS Safety Report 9408189 (Version 2)
Quarter: 2013Q3

REPORT INFORMATION
  Report Type: Spontaneous
  Country: US (occurrence: US)
  Receive Date: 20130718
  Receipt Date: 20130816
  Transmission Date: 20140515
  Serious: No
  Sender: FDA-Public Use
  Company Number: US-BAYER-2013-083088

PATIENT
  Age: 66 Year
  Sex: Female

DRUGS (6)
  1. BAYER ASPIRIN REGIMEN ADULT LOW STRENGTH [Suspect]
     Indication: THROMBOSIS PROPHYLAXIS
     Dosage: 1 DF, QD
     Route: 048
     Dates: start: 20130626, end: 20130701
  2. PROZAC [Concomitant]
  3. ABILIFY [Concomitant]
  4. DEPAKOTE [Concomitant]
  5. SYNTHROID [Concomitant]
  6. CYTOMEL [Concomitant]

REACTIONS (2)
  - Faeces discoloured [Recovered/Resolved]
  - Faeces discoloured [Recovered/Resolved]
